FAERS Safety Report 4515841-X (Version None)
Quarter: 2004Q4

REPORT INFORMATION
  Report Type: 
  Country: None (occurrence: None)
  Receive Date: 20041001
  Receipt Date: 20040304
  Transmission Date: 20050328
  Serious: Yes (Hospitalization)
  Sender: FDA-Public Use
  Company Number: TPA2004A00235

PATIENT
  Age: 62 Year
  Sex: Female
  Weight: 111.1313 kg

DRUGS (9)
  1. ACTOS [Suspect]
     Indication: DIABETES MELLITUS NON-INSULIN-DEPENDENT
     Dosage: 30 MG, 1 IN 1 D, PER ORAL
     Route: 048
     Dates: start: 20030201
  2. SEROQUEL [Concomitant]
  3. METOPROLOL TARTRATE [Concomitant]
  4. LIBRIUM [Concomitant]
  5. ASPIRIN [Concomitant]
  6. GLYBURIDE (GLINBENCLAMIDE) [Concomitant]
  7. NITROGLYCERIN [Concomitant]
  8. COMBIVENT [Concomitant]
  9. RHINOCORT [Concomitant]

REACTIONS (6)
  - CARDIAC FAILURE CONGESTIVE [None]
  - DYSPNOEA [None]
  - HEADACHE [None]
  - OEDEMA PERIPHERAL [None]
  - PHARYNGITIS [None]
  - WEIGHT INCREASED [None]
